FAERS Safety Report 20571663 (Version 3)
Quarter: 2022Q1

REPORT INFORMATION
  Report Type: Spontaneous
  Country: US (occurrence: None)
  Receive Date: 20220309
  Receipt Date: 20220325
  Transmission Date: 20220423
  Serious: Yes (Other)
  Sender: FDA-Public Use
  Company Number: 2022A075977

PATIENT
  Age: 764 Month
  Sex: Female
  Weight: 125 kg

DRUGS (17)
  1. BYDUREON BCISE [Suspect]
     Active Substance: EXENATIDE
     Indication: Type 2 diabetes mellitus
     Route: 058
     Dates: start: 20220129
  2. ASTHMALOG INSULIN [Concomitant]
     Indication: Type 2 diabetes mellitus
  3. VASAGLAR INSULIN [Concomitant]
     Indication: Type 2 diabetes mellitus
  4. METFORMIN [Concomitant]
     Active Substance: METFORMIN HYDROCHLORIDE
     Indication: Type 2 diabetes mellitus
  5. TRULICY [Concomitant]
  6. ACETAMINOPHEN\DIPHENHYDRAMINE HYDROCHLORIDE [Concomitant]
     Active Substance: ACETAMINOPHEN\DIPHENHYDRAMINE HYDROCHLORIDE
  7. ADMELOG [Concomitant]
     Active Substance: INSULIN LISPRO
     Dosage: 100 UNITS/ML, , INJECT UP TO 30 UNITS EACH MEAL UPTO 4 X DAILY BASED ON SLIDING SCALE. MAX 120 UN...
  8. ATORVASTATIN [Concomitant]
     Active Substance: ATORVASTATIN
     Route: 048
  9. BASAGLAR [Concomitant]
     Active Substance: INSULIN GLARGINE
     Dosage: 100 UNITS/ML, INJECT 70 UNITS DAILY
     Route: 058
  10. CANDESARTAN [Concomitant]
     Active Substance: CANDESARTAN
     Route: 048
  11. ESOMEPRAZOLE [Concomitant]
     Active Substance: ESOMEPRAZOLE
     Route: 048
  12. LEVOTHYROXINE [Concomitant]
     Active Substance: LEVOTHYROXINE
     Route: 048
  13. LORAZEPAM [Concomitant]
     Active Substance: LORAZEPAM
     Route: 048
  14. TIZANIDINE [Concomitant]
     Active Substance: TIZANIDINE
     Dosage: TAKE 1 TABLET BY MOUTH
     Route: 048
  15. INSULIN NOS [Concomitant]
     Active Substance: INSULIN NOS
     Indication: Diabetes mellitus
     Dosage: 32 GAUGE (6MM), USE UP TO 4 TIMES DAIIY
  16. TRAMADOL [Concomitant]
     Active Substance: TRAMADOL
     Dosage: 2-3 TAB, PRN, ORALLY, Q12H
     Route: 048
  17. VITAMIN D3 [Concomitant]
     Active Substance: CHOLECALCIFEROL
     Dosage: 5,000 INTLUNITS 1 CAPSULE, ORALLY, QAM
     Route: 048

REACTIONS (9)
  - Chronic kidney disease [Unknown]
  - Injury associated with device [Unknown]
  - Hypothyroidism [Unknown]
  - Depression [Unknown]
  - Fatigue [Unknown]
  - Incorrect dose administered by device [Unknown]
  - Drug dose omission by device [Unknown]
  - Drug ineffective [Not Recovered/Not Resolved]
  - Device failure [Unknown]

NARRATIVE: CASE EVENT DATE: 20220201
